FAERS Safety Report 20788786 (Version 1)
Quarter: 2022Q2

REPORT INFORMATION
  Report Type: Spontaneous
  Country: US (occurrence: None)
  Receive Date: 20220504
  Receipt Date: 20220504
  Transmission Date: 20220721
  Serious: Yes (Other)
  Sender: FDA-Public Use
  Company Number: None

PATIENT
  Age: 71 Year
  Sex: Female
  Weight: 51.75 kg

DRUGS (5)
  1. I 131 MINI [Suspect]
     Active Substance: SODIUM IODIDE I-131
     Indication: Thyroid cancer
  2. SYNTHROID [Concomitant]
     Active Substance: LEVOTHYROXINE SODIUM
  3. HYDROXYUREA [Concomitant]
     Active Substance: HYDROXYUREA
  4. ASPIRIN [Concomitant]
     Active Substance: ASPIRIN
  5. VITAMIN D NOS [Concomitant]
     Active Substance: VITAMIN D NOS

REACTIONS (1)
  - Polycythaemia vera [None]

NARRATIVE: CASE EVENT DATE: 20220503
